FAERS Safety Report 18165105 (Version 2)
Quarter: 2021Q2

REPORT INFORMATION
  Report Type: Spontaneous
  Country: DE (occurrence: DE)
  Receive Date: 20200818
  Receipt Date: 20210511
  Transmission Date: 20210717
  Serious: Yes (Hospitalization, Other)
  Sender: FDA-Public Use
  Company Number: NVSC2020DE226196

PATIENT
  Age: 64 Year
  Sex: Female

DRUGS (3)
  1. BISOPROLOL ? 1 A PHARMA [Suspect]
     Active Substance: BISOPROLOL
     Indication: PRODUCT USED FOR UNKNOWN INDICATION
     Dosage: 5 OT
     Route: 065
  2. BISOPROLOL ? 1 A PHARMA [Suspect]
     Active Substance: BISOPROLOL
     Dosage: 2.5 MG (DISCONTINUED)
     Route: 065
  3. BISOPROLOL ? 1 A PHARMA [Suspect]
     Active Substance: BISOPROLOL
     Dosage: 2.5 MG
     Route: 065

REACTIONS (8)
  - Cardiovascular disorder [Unknown]
  - Dizziness [Unknown]
  - Fatigue [Unknown]
  - Vomiting [Unknown]
  - Eating disorder [Unknown]
  - Nausea [Unknown]
  - Circulatory collapse [Unknown]
  - Blood pressure decreased [Unknown]

NARRATIVE: CASE EVENT DATE: 202008
